FAERS Safety Report 19050302 (Version 1)
Quarter: 2021Q1

REPORT INFORMATION
  Report Type: Spontaneous
  Country: US (occurrence: US)
  Receive Date: 20210323
  Receipt Date: 20210323
  Transmission Date: 20210420
  Serious: Yes (Hospitalization, Disabling)
  Sender: FDA-Public Use
  Company Number: None

PATIENT
  Age: 43 Year
  Sex: Male
  Weight: 370.22 kg

DRUGS (1)
  1. MELOXICAM 15 MG [Suspect]
     Active Substance: MELOXICAM

REACTIONS (2)
  - Dizziness [None]
  - Blood pressure increased [None]

NARRATIVE: CASE EVENT DATE: 20210226
